FAERS Safety Report 10409981 (Version 1)
Quarter: 2014Q3

REPORT INFORMATION
  Report Type: Spontaneous
  Country: GB (occurrence: GB)
  Receive Date: 20140826
  Receipt Date: 20140826
  Transmission Date: 20150326
  Serious: Yes (Death)
  Sender: FDA-Public Use
  Company Number: GB-ASTRAZENECA-2014SE62913

PATIENT
  Age: 31 Year
  Sex: Female

DRUGS (2)
  1. PROPOFOL. [Suspect]
     Active Substance: PROPOFOL
     Indication: MECHANICAL VENTILATION
     Route: 042
  2. PROPOFOL. [Suspect]
     Active Substance: PROPOFOL
     Indication: SEDATION
     Route: 042

REACTIONS (7)
  - Pyrexia [Fatal]
  - Hypoxia [Fatal]
  - Multi-organ failure [Fatal]
  - Hyperkalaemia [Fatal]
  - Propofol infusion syndrome [Fatal]
  - Rhabdomyolysis [Fatal]
  - Myoglobinuria [Fatal]
